FAERS Safety Report 8901883 (Version 1)
Quarter: 2012Q4

REPORT INFORMATION
  Report Type: Spontaneous
  Country: US (occurrence: None)
  Receive Date: 20121109
  Receipt Date: 20121109
  Transmission Date: 20130627
  Serious: No
  Sender: FDA-Public Use
  Company Number: None

PATIENT
  Sex: Female

DRUGS (1)
  1. ENBREL [Suspect]
     Indication: RA
     Dates: start: 201206

REACTIONS (5)
  - Headache [None]
  - Injection site reaction [None]
  - Hyperhidrosis [None]
  - Vision blurred [None]
  - Blister [None]
